FAERS Safety Report 6064677-X (Version None)
Quarter: 2009Q1

REPORT INFORMATION
  Report Type: 
  Country: None (occurrence: None)
  Receive Date: 20090204
  Receipt Date: 20080501
  Transmission Date: 20090719
  Serious: Yes (Other)
  Sender: FDA-Public Use
  Company Number: A0725861A

PATIENT
  Age: 92 Year
  Sex: Male
  Weight: 48.6 kg

DRUGS (7)
  1. ARIXTRA [Suspect]
     Dosage: 2.5MG PER DAY
     Route: 058
     Dates: start: 20080427, end: 20080430
  2. VANCOMYCIN [Concomitant]
  3. SINEMET [Concomitant]
  4. ARICEPT [Concomitant]
  5. NAMENDA [Concomitant]
  6. ZINC [Concomitant]
  7. VIT C [Concomitant]

REACTIONS (1)
  - HAEMORRHAGE [None]
